FAERS Safety Report 10657527 (Version 1)
Quarter: 2014Q4

REPORT INFORMATION
  Report Type: Spontaneous
  Country: US (occurrence: None)
  Receive Date: 20141216
  Receipt Date: 20141216
  Transmission Date: 20150529
  Serious: No
  Sender: FDA-Public Use
  Company Number: None

PATIENT
  Age: 62 Year
  Sex: Female

DRUGS (1)
  1. NEXAVAR [Suspect]
     Active Substance: SORAFENIB
     Indication: ORGAN TRANSPLANT
     Route: 048
     Dates: start: 20141029

REACTIONS (2)
  - Blood pressure increased [None]
  - Dizziness [None]

NARRATIVE: CASE EVENT DATE: 20141115
